FAERS Safety Report 17199945 (Version 1)
Quarter: 2019Q4

REPORT INFORMATION
  Report Type: Spontaneous
  Country: CA (occurrence: CA)
  Receive Date: 20191226
  Receipt Date: 20191226
  Transmission Date: 20200122
  Serious: Yes (Hospitalization)
  Sender: FDA-Public Use
  Company Number: CA-TEVA-2019-CA-1156316

PATIENT
  Age: 66 Year
  Sex: Male

DRUGS (12)
  1. PREGABALIN. [Suspect]
     Active Substance: PREGABALIN
     Indication: BACK PAIN
     Dosage: 150 MILLIGRAM DAILY;
     Route: 048
  2. CELECOXIB. [Concomitant]
     Active Substance: CELECOXIB
  3. METFORMIN [Concomitant]
     Active Substance: METFORMIN HYDROCHLORIDE
  4. OXYNEO [Concomitant]
     Active Substance: OXYCODONE
  5. SPIRIVA [Concomitant]
     Active Substance: TIOTROPIUM BROMIDE MONOHYDRATE
  6. TELMISARTAN. [Concomitant]
     Active Substance: TELMISARTAN
  7. ASA [Concomitant]
     Active Substance: ASPIRIN
  8. SALBUTAMOL [Concomitant]
     Active Substance: ALBUTEROL
  9. FUROSEMIDE. [Concomitant]
     Active Substance: FUROSEMIDE
  10. TRAJENTA [Concomitant]
     Active Substance: LINAGLIPTIN
  11. TYLENOL WITH CODEINE [Concomitant]
     Active Substance: ACETAMINOPHEN\CODEINE PHOSPHATE
  12. ADVAIR 500 DISKUS [Concomitant]

REACTIONS (2)
  - Seizure [Recovered/Resolved]
  - Multiple fractures [Recovered/Resolved]
